FAERS Safety Report 5141536-8 (Version None)
Quarter: 2006Q4

REPORT INFORMATION
  Report Type: 
  Country: None (occurrence: None)
  Receive Date: 20061026
  Receipt Date: 20061017
  Transmission Date: 20070319
  Serious: Yes (Hospitalization, Disabling)
  Sender: FDA-Public Use
  Company Number: 2006-05-2007

PATIENT
  Age: 29 Year
  Sex: Female
  Weight: 65.318 kg

DRUGS (3)
  1. TEMODAR [Suspect]
     Indication: GLIOMA
     Dosage: 120 MG;QD;PO
     Route: 048
     Dates: start: 20060306, end: 20060414
  2. RADIATION THERAPY [Suspect]
     Indication: BRAIN NEOPLASM
  3. DEXAMETHASONE TAB [Concomitant]

REACTIONS (1)
  - REVERSIBLE POSTERIOR LEUKOENCEPHALOPATHY SYNDROME [None]
